FAERS Safety Report 9570356 (Version 1)
Quarter: 2013Q3

REPORT INFORMATION
  Report Type: Spontaneous
  Country: US (occurrence: US)
  Receive Date: 20130930
  Receipt Date: 20130930
  Transmission Date: 20140515
  Serious: No
  Sender: FDA-Public Use
  Company Number: US-AMGEN-USASP2013064447

PATIENT
  Age: 63 Year
  Sex: Female
  Weight: 80.73 kg

DRUGS (12)
  1. ENBREL [Suspect]
     Indication: RHEUMATOID ARTHRITIS
     Dosage: 50 MG, QWK
     Route: 058
     Dates: start: 20130826
  2. PREDNISONE [Concomitant]
     Dosage: UNK
  3. PANTOPRAZOLE [Concomitant]
     Dosage: 40 MG, UNK
  4. LASIX                              /00032601/ [Concomitant]
     Dosage: 20 MG, UNK
  5. AMLODIPINE [Concomitant]
     Dosage: 5 MG, UNK
  6. RAMIPRIL [Concomitant]
     Dosage: 10 MG, UNK
  7. LIPITOR [Concomitant]
     Dosage: 10 MG, UNK
  8. LEFLUNOMIDE [Concomitant]
     Dosage: 20 MG, UNK
  9. DICYCLOMINE                        /00068601/ [Concomitant]
     Dosage: 10 MG, UNK
  10. ASA [Concomitant]
     Dosage: 81 MG, UNK, LOW DOSE, EC
  11. MULTIVITAMINS, PLAIN [Concomitant]
     Dosage: UNK
  12. FOLIC ACID [Concomitant]
     Dosage: UNK

REACTIONS (4)
  - Nausea [Unknown]
  - Headache [Unknown]
  - Injection site pain [Unknown]
  - Injection site rash [Unknown]
